FAERS Safety Report 7570709-X (Version None)
Quarter: 2011Q2

REPORT INFORMATION
  Report Type: 
  Country: None (occurrence: None)
  Receive Date: 20110624
  Receipt Date: 20110524
  Transmission Date: 20111010
  Serious: No
  Sender: FDA-Public Use
  Company Number: US-ALLERGAN-1106633US

PATIENT
  Age: 72 Year
  Sex: Female

DRUGS (2)
  1. LATISSE [Suspect]
     Indication: GROWTH OF EYELASHES
     Dosage: 1 GTT, QD
     Route: 061
     Dates: start: 20110510, end: 20110511
  2. LATISSE [Suspect]
     Indication: EYELASH DISCOLOURATION

REACTIONS (2)
  - BURNING SENSATION [None]
  - ERYTHEMA OF EYELID [None]
